FAERS Safety Report 8251166-7 (Version None)
Quarter: 2012Q2

REPORT INFORMATION
  Report Type: 
  Country: None (occurrence: None)
  Receive Date: 20120402
  Receipt Date: 20120323
  Transmission Date: 20120825
  Serious: Yes (Other)
  Sender: FDA-Public Use
  Company Number: JP-MERCK-1203USA03665

PATIENT

DRUGS (3)
  1. SUCRALFATE [Concomitant]
     Route: 065
  2. PEPCID [Suspect]
     Route: 042
  3. SODIUM ALGINATE [Concomitant]
     Route: 048

REACTIONS (1)
  - DRUG INEFFECTIVE [None]
